FAERS Safety Report 11916935 (Version 1)
Quarter: 2016Q1

REPORT INFORMATION
  Report Type: Report from Study
  Country: HU (occurrence: HU)
  Receive Date: 20160114
  Receipt Date: 20160114
  Transmission Date: 20160526
  Serious: Yes (Hospitalization)
  Sender: FDA-Public Use
  Company Number: HU-ABBVIE-16P-076-1534429-00

PATIENT
  Age: 49 Year
  Sex: Male

DRUGS (2)
  1. EXVIERA [Suspect]
     Active Substance: DASABUVIR
     Indication: HEPATITIS C
     Route: 048
     Dates: start: 20151223
  2. VIEKIRAX [Suspect]
     Active Substance: OMBITASVIR\PARITAPREVIR\RITONAVIR
     Indication: HEPATITIS C
     Dosage: 12.5/75/50 MG, 2 TABLETS AT A TIME
     Route: 048
     Dates: start: 20151223

REACTIONS (3)
  - Infection [Recovering/Resolving]
  - Pyrexia [Recovering/Resolving]
  - Viral diarrhoea [Recovering/Resolving]

NARRATIVE: CASE EVENT DATE: 20160106
